FAERS Safety Report 5075783-0 (Version None)
Quarter: 2006Q3

REPORT INFORMATION
  Report Type: 
  Country: None (occurrence: None)
  Receive Date: 20060803
  Receipt Date: 20060803
  Transmission Date: 20061208
  Serious: Yes (Life-Threatening, Other)
  Sender: FDA-Public Use
  Company Number: None

PATIENT
  Sex: Female
  Weight: 72.757 kg

DRUGS (2)
  1. MORPHINE [Suspect]
     Indication: PAIN MANAGEMENT
     Dosage: 90MG  1 TID   AFTER HOSPITAL SURGERY
     Dates: start: 20031212
  2. MORPHINE [Suspect]
     Indication: PAIN MANAGEMENT
     Dosage: 90MG  1 TID   AFTER HOSPITAL SURGERY
     Dates: start: 20050501

REACTIONS (6)
  - BLOOD PRESSURE INCREASED [None]
  - CARDIAC FAILURE CONGESTIVE [None]
  - DRUG HYPERSENSITIVITY [None]
  - HEART RATE INCREASED [None]
  - IATROGENIC INJURY [None]
  - POST PROCEDURAL COMPLICATION [None]
